FAERS Safety Report 12341633 (Version 1)
Quarter: 2016Q2

REPORT INFORMATION
  Report Type: Spontaneous
  Country: US (occurrence: US)
  Receive Date: 20160506
  Receipt Date: 20160506
  Transmission Date: 20160815
  Serious: Yes (Other)
  Sender: FDA-Public Use
  Company Number: US-MDT-ADR-2016-00342

PATIENT
  Age: 45 Year
  Sex: Female

DRUGS (1)
  1. BACLOFEN. [Suspect]
     Active Substance: BACLOFEN
     Route: 037

REACTIONS (4)
  - Tremor [Unknown]
  - Medical device site erosion [Unknown]
  - Musculoskeletal stiffness [Unknown]
  - Medical device site pain [Unknown]

NARRATIVE: CASE EVENT DATE: 2011
